FAERS Safety Report 18051970 (Version 2)
Quarter: 2020Q3

REPORT INFORMATION
  Report Type: Spontaneous
  Country: US (occurrence: US)
  Receive Date: 20200721
  Receipt Date: 20200820
  Transmission Date: 20201103
  Serious: No
  Sender: FDA-Public Use
  Company Number: US-PFIZER INC-2020268880

PATIENT
  Age: 39 Year
  Sex: Male
  Weight: 83.9 kg

DRUGS (2)
  1. CHANTIX [Suspect]
     Active Substance: VARENICLINE TARTRATE
     Dosage: UNK, DAILY (WHITE THEN BLUE OR VICE VERSA, SO MANY PER DAY)
     Route: 048
  2. CHANTIX [Suspect]
     Active Substance: VARENICLINE TARTRATE
     Indication: SMOKING CESSATION THERAPY
     Dosage: UNK
     Route: 048
     Dates: start: 2016

REACTIONS (6)
  - Drug ineffective [Unknown]
  - Panic attack [Unknown]
  - Nervousness [Unknown]
  - Palpitations [Unknown]
  - Anxiety [Unknown]
  - Impaired driving ability [Unknown]
